FAERS Safety Report 5036787-7 (Version None)
Quarter: 2006Q2

REPORT INFORMATION
  Report Type: 
  Country: None (occurrence: None)
  Receive Date: 20060623
  Receipt Date: 20060612
  Transmission Date: 20061013
  Serious: Yes (Life-Threatening, Hospitalization)
  Sender: FDA-Public Use
  Company Number: 0601328US

PATIENT
  Age: 49 Year
  Sex: Male
  Weight: 65 kg

DRUGS (4)
  1. BOTOX [Suspect]
     Indication: MUSCLE SPASTICITY
     Dosage: 300 UNITS, SINGLE, INTRAMUSCULAR
     Route: 030
     Dates: start: 20060601, end: 20060601
  2. BACLOFEN [Concomitant]
  3. GABAPENTIN [Concomitant]
  4. ACETAMINOPHEN [Concomitant]

REACTIONS (11)
  - ASTHENIA [None]
  - DYSPNOEA [None]
  - EATING DISORDER [None]
  - FATIGUE [None]
  - HEMIPARESIS [None]
  - IATROGENIC INJURY [None]
  - INCORRECT ROUTE OF DRUG ADMINISTRATION [None]
  - MUSCULAR WEAKNESS [None]
  - PROCEDURAL COMPLICATION [None]
  - RESPIRATORY DEPRESSION [None]
  - VASCULAR RUPTURE [None]
